FAERS Safety Report 10156968 (Version 1)
Quarter: 2014Q2

REPORT INFORMATION
  Report Type: Spontaneous
  Country: US (occurrence: None)
  Receive Date: 20140506
  Receipt Date: 20140506
  Transmission Date: 20141212
  Serious: Yes (Disabling)
  Sender: FDA-Public Use
  Company Number: None

PATIENT
  Age: 78 Year
  Sex: Female
  Weight: 79.83 kg

DRUGS (10)
  1. ALENDRONATE [Suspect]
     Indication: OSTEOPOROSIS
     Dosage: 4 TABLETS
     Route: 048
     Dates: start: 20130720, end: 20130801
  2. ASPIRIN [Concomitant]
  3. LESCOL [Concomitant]
  4. SYNTHROID [Concomitant]
  5. LISINOPRIL [Concomitant]
  6. PAXIL [Concomitant]
  7. CACLIUM [Concomitant]
  8. VITS D3 [Concomitant]
  9. CRANBERRY [Concomitant]
  10. ARTHROTEAN [Concomitant]

REACTIONS (5)
  - Arthralgia [None]
  - Movement disorder [None]
  - Abasia [None]
  - Pain in extremity [None]
  - Groin pain [None]
